FAERS Safety Report 7264925-4 (Version None)
Quarter: 2011Q1

REPORT INFORMATION
  Report Type: 
  Country: None (occurrence: None)
  Receive Date: 20110131
  Receipt Date: 20101207
  Transmission Date: 20110831
  Serious: Yes (Other)
  Sender: FDA-Public Use
  Company Number: US-BAYER-201036118NA

PATIENT
  Sex: Female
  Weight: 72.562 kg

DRUGS (9)
  1. YAZ [Suspect]
     Indication: ACNE
     Dosage: UNK
     Route: 048
     Dates: start: 20070701, end: 20091101
  2. GAS-X [Concomitant]
     Indication: FLATULENCE
  3. LEXAPRO [Concomitant]
     Indication: ANXIETY
     Dosage: UNK
     Dates: start: 20080401, end: 20090101
  4. YASMIN [Suspect]
     Indication: PRODUCT USED FOR UNKNOWN INDICATION
     Dosage: UNK
     Route: 048
     Dates: start: 20070701, end: 20091101
  5. ADVIL [Concomitant]
  6. MINOCYCLINE HCL [Concomitant]
     Dosage: UNK
     Dates: start: 20060101
  7. TUMS [CALCIUM CARBONATE] [Concomitant]
     Indication: FLATULENCE
  8. NASACORT [Concomitant]
  9. PHENDIMETRAZINE FUMARATE [Concomitant]
     Dosage: UNK
     Dates: start: 20080501

REACTIONS (2)
  - CHOLECYSTITIS CHRONIC [None]
  - CHOLELITHIASIS [None]
